FAERS Safety Report 23239242 (Version 1)
Quarter: 2023Q4

REPORT INFORMATION
  Report Type: Other
  Country: IN (occurrence: None)
  Receive Date: 20231129
  Receipt Date: 20231129
  Transmission Date: 20240109
  Serious: Yes (Other)
  Sender: FDA-Public Use
  Company Number: IN-ROCHE-3297099

PATIENT
  Age: 64 Year
  Sex: Male

DRUGS (1)
  1. KADCYLA [Suspect]
     Active Substance: ADO-TRASTUZUMAB EMTANSINE
     Indication: Breast cancer metastatic
     Route: 042
     Dates: start: 20220709

REACTIONS (2)
  - Off label use [Unknown]
  - Pulmonary fibrosis [Unknown]
